FAERS Safety Report 9944986 (Version 1)
Quarter: 2014Q1

REPORT INFORMATION
  Report Type: Report from Study
  Country: US (occurrence: US)
  Receive Date: 20140303
  Receipt Date: 20140303
  Transmission Date: 20141002
  Serious: No
  Sender: FDA-Public Use
  Company Number: US-ABBVIE-13P-163-1052919-00

PATIENT
  Age: 39 Year
  Sex: Female

DRUGS (5)
  1. HUMIRA [Suspect]
     Indication: PSORIASIS
     Dates: start: 2011
  2. LOSARTAN HCTZ [Concomitant]
     Indication: BLOOD PRESSURE
     Dosage: 100-25 MG X 1 DAILY
  3. PRILOSEC [Concomitant]
     Indication: DYSPEPSIA
  4. PRILOSEC [Concomitant]
     Indication: DYSPEPSIA
  5. CITALOPRAM [Concomitant]
     Indication: ANXIETY

REACTIONS (3)
  - Device malfunction [Unknown]
  - Injection site pain [Unknown]
  - Injection site nodule [Unknown]
